FAERS Safety Report 17187898 (Version 5)
Quarter: 2020Q1

REPORT INFORMATION
  Report Type: Spontaneous
  Country: US (occurrence: US)
  Receive Date: 20191221
  Receipt Date: 20200123
  Transmission Date: 20200409
  Serious: Yes (Hospitalization)
  Sender: FDA-Public Use
  Company Number: US-UNITED THERAPEUTICS-UNT-2019-020680

PATIENT
  Age: 53 Year
  Sex: Female
  Weight: 73.47 kg

DRUGS (4)
  1. REMODULIN [Suspect]
     Active Substance: TREPROSTINIL
     Dosage: 0.040 ?G/KG, CONTINUING
     Route: 058
  2. REMODULIN [Suspect]
     Active Substance: TREPROSTINIL
     Dosage: 0.0305 ?G/KG, CONTINUING
     Route: 058
  3. REMODULIN [Suspect]
     Active Substance: TREPROSTINIL
     Indication: PULMONARY ARTERIAL HYPERTENSION
     Dosage: 0.0305 ?G/KG, CONTINUING
     Route: 058
     Dates: start: 20190912
  4. SILDENAFIL CITRATE. [Concomitant]
     Active Substance: SILDENAFIL CITRATE
     Indication: PRODUCT USED FOR UNKNOWN INDICATION
     Dosage: UNK
     Route: 065

REACTIONS (7)
  - Infusion site erythema [Unknown]
  - Pain [Unknown]
  - Device dislocation [Unknown]
  - Infusion site swelling [Unknown]
  - Staphylococcal infection [Unknown]
  - Infusion site abscess [Unknown]
  - Infusion site pain [Unknown]

NARRATIVE: CASE EVENT DATE: 2019
